FAERS Safety Report 11753765 (Version 1)
Quarter: 2015Q4

REPORT INFORMATION
  Report Type: Spontaneous
  Country: US (occurrence: US)
  Receive Date: 20151119
  Receipt Date: 20151119
  Transmission Date: 20160304
  Serious: No
  Sender: FDA-Public Use
  Company Number: US-PFIZER INC-2015393261

PATIENT
  Age: 76 Year
  Sex: Female

DRUGS (19)
  1. ARMOUR THYROID [Concomitant]
     Active Substance: THYROID, PORCINE\THYROID, UNSPECIFIED
     Indication: THYROID DISORDER
     Dosage: 30 MG, 1X/DAY
     Route: 048
     Dates: start: 2009
  2. CALCIUM MAGNESIUM + ZINC [Concomitant]
     Indication: BONE DISORDER
     Dosage: 3 DF, NIGHTLY
     Dates: start: 2009
  3. TYLENOL EXTRA STRENGTH [Concomitant]
     Active Substance: ACETAMINOPHEN
     Dosage: 2 DF, AS NEEDED
  4. SPIRONOLACTONE. [Concomitant]
     Active Substance: SPIRONOLACTONE
     Indication: DIURETIC THERAPY
     Dosage: 12.5 MG, 1X/DAY
  5. ASA [Concomitant]
     Active Substance: ASPIRIN
     Indication: PROPHYLAXIS
     Dosage: 81 MG, EVERY NIGHT
     Route: 048
     Dates: start: 1970
  6. TUNA OMEGA [Concomitant]
     Indication: BLOOD CHOLESTEROL
     Dosage: 2 DF, EVERY NIGHT
  7. MAGNESIUM OXIDE. [Concomitant]
     Active Substance: MAGNESIUM OXIDE
     Indication: DEHYDRATION
     Dosage: 400 MG, 2X/DAY
     Route: 048
     Dates: start: 20151106
  8. COENZYME A/VITAMIN B COMPLEX [Concomitant]
     Indication: VITAMIN SUPPLEMENTATION
     Dosage: 1 DF, DAILY
     Route: 048
     Dates: start: 2009
  9. VITAMIN B12 [Concomitant]
     Active Substance: CYANOCOBALAMIN
     Indication: FATIGUE
     Dosage: 1 DF, EVERY 3 WEEKS
     Route: 058
     Dates: start: 2009
  10. TUNA OMEGA [Concomitant]
     Indication: CARDIOVASCULAR EVENT PROPHYLAXIS
  11. TUNA OMEGA [Concomitant]
     Indication: PAIN
  12. MAGNESIUM OXIDE. [Concomitant]
     Active Substance: MAGNESIUM OXIDE
     Indication: CARDIAC DISORDER
  13. CALCIUM LACTATE [Concomitant]
     Active Substance: CALCIUM LACTATE
     Indication: BONE DISORDER
     Dosage: 2 DF, EVERY NIGHT
     Dates: start: 20150102
  14. PROBIOTIC [Concomitant]
     Active Substance: PROBIOTICS NOS
     Indication: IRRITABLE BOWEL SYNDROME
     Dosage: 35 BILLION, 2 DF, ONE IN MORNING AND ONE AT NIGHT
     Dates: start: 2009
  15. LOSARTAN K [Concomitant]
     Indication: HYPERTENSION
     Dosage: 100 MG, AT NIGHT
     Route: 048
  16. ALPRAZOLAM. [Suspect]
     Active Substance: ALPRAZOLAM
     Indication: PANIC ATTACK
     Dosage: 0.25 MG, EVERY 8 HOURS
     Route: 048
     Dates: start: 2015, end: 2015
  17. TENORMIN [Concomitant]
     Active Substance: ATENOLOL
     Indication: HYPERTENSION
     Dosage: 50 MG, EVERY 8 HOURS
     Route: 048
  18. VITAMIN D3 [Concomitant]
     Active Substance: CHOLECALCIFEROL
     Indication: VITAMIN D ABNORMAL
     Dosage: 2 DF, EVERY NIGHT
  19. FOLACIN-12 [Concomitant]
     Dosage: 1 DF, DAILY

REACTIONS (1)
  - Drug ineffective [Unknown]

NARRATIVE: CASE EVENT DATE: 2015
